FAERS Safety Report 4560678-9 (Version None)
Quarter: 2005Q1

REPORT INFORMATION
  Report Type: 
  Country: None (occurrence: None)
  Receive Date: 20050124
  Receipt Date: 20050124
  Transmission Date: 20050727
  Serious: Yes (Other)
  Sender: FDA-Public Use
  Company Number: None

PATIENT
  Age: 41 Year
  Sex: Female
  Weight: 88.4514 kg

DRUGS (6)
  1. CYMBALTA [Suspect]
     Indication: BIPOLAR DISORDER
     Dates: start: 20041113, end: 20041130
  2. CYMBALTA [Suspect]
     Indication: SCHIZOPHRENIA
     Dates: start: 20041113, end: 20041130
  3. IMITREX [Suspect]
     Indication: HEADACHE
     Dates: start: 20041128, end: 20041129
  4. ADDERALL 20 [Concomitant]
  5. GEODON [Concomitant]
  6. LOTREL [Concomitant]

REACTIONS (4)
  - DYSGEUSIA [None]
  - FEELING ABNORMAL [None]
  - HEADACHE [None]
  - PALPITATIONS [None]
